FAERS Safety Report 24982348 (Version 2)
Quarter: 2025Q2

REPORT INFORMATION
  Report Type: Report from Study
  Country: US (occurrence: US)
  Receive Date: 20250218
  Receipt Date: 20250404
  Transmission Date: 20250717
  Serious: Yes (Hospitalization, Other)
  Sender: BRISTOL MYERS SQUIBB
  Company Number: US-BRISTOL-MYERS SQUIBB COMPANY-2025-019963

PATIENT
  Age: 68 Year
  Sex: Female
  Weight: 40.37 kg

DRUGS (1)
  1. REVLIMID [Suspect]
     Active Substance: LENALIDOMIDE
     Indication: Plasma cell myeloma
     Dosage: TAKE 1 CAPSULE DAILY FOR 3 WEEKS ON AND 1 WEEK OFF
     Route: 048
     Dates: start: 20241001

REACTIONS (4)
  - COVID-19 pneumonia [Unknown]
  - Atrial fibrillation [Unknown]
  - Product dose omission issue [Unknown]
  - Arteriovenous fistula thrombosis [Unknown]

NARRATIVE: CASE EVENT DATE: 20250101
